FAERS Safety Report 11003771 (Version 1)
Quarter: 2015Q2

REPORT INFORMATION
  Report Type: Spontaneous
  Country: US (occurrence: US)
  Receive Date: 20150409
  Receipt Date: 20150409
  Transmission Date: 20150821
  Serious: No
  Sender: FDA-Public Use
  Company Number: US-ASTRAZENECA-2015SE32651

PATIENT
  Sex: Female
  Weight: 77.1 kg

DRUGS (6)
  1. WELLBUTRIN SR [Concomitant]
     Active Substance: BUPROPION HYDROCHLORIDE
     Indication: DEPRESSION
     Route: 048
     Dates: start: 1996
  2. LEVOTHYROXINE [Concomitant]
     Active Substance: LEVOTHYROXINE
     Indication: HYPOTHYROIDISM
     Route: 048
     Dates: start: 2008
  3. ZYRTEC OTC [Concomitant]
     Indication: MULTIPLE ALLERGIES
     Route: 048
     Dates: start: 2000
  4. ATACAND [Suspect]
     Active Substance: CANDESARTAN CILEXETIL
     Indication: BLOOD PRESSURE ABNORMAL
     Dosage: GENERIC
     Route: 048
     Dates: start: 2000
  5. DEXILANT [Concomitant]
     Active Substance: DEXLANSOPRAZOLE
     Indication: HYPERCHLORHYDRIA
     Route: 048
     Dates: start: 2014
  6. ATACAND [Suspect]
     Active Substance: CANDESARTAN CILEXETIL
     Indication: BLOOD PRESSURE ABNORMAL
     Route: 048
     Dates: start: 2000

REACTIONS (4)
  - Agitation [Unknown]
  - Blood pressure inadequately controlled [Unknown]
  - Headache [Unknown]
  - Drug ineffective [Unknown]
